FAERS Safety Report 20319802 (Version 1)
Quarter: 2022Q1

REPORT INFORMATION
  Report Type: Spontaneous
  Country: US (occurrence: None)
  Receive Date: 20220111
  Receipt Date: 20220111
  Transmission Date: 20220424
  Serious: Yes (Death)
  Sender: FDA-Public Use
  Company Number: US-ROCHE-2998804

PATIENT
  Sex: Male

DRUGS (6)
  1. ESBRIET [Suspect]
     Active Substance: PIRFENIDONE
     Indication: Idiopathic pulmonary fibrosis
     Route: 048
  2. PREDNISONE [Concomitant]
     Active Substance: PREDNISONE
  3. PRAVASTATIN [Concomitant]
     Active Substance: PRAVASTATIN
  4. ALBUTEROL [Concomitant]
     Active Substance: ALBUTEROL
  5. NITROGLYCERIN [Concomitant]
     Active Substance: NITROGLYCERIN
  6. TRELEGY ELLIPTA [Concomitant]
     Active Substance: FLUTICASONE FUROATE\UMECLIDINIUM BROMIDE\VILANTEROL TRIFENATATE

REACTIONS (1)
  - Death [Fatal]
